FAERS Safety Report 17039878 (Version 6)
Quarter: 2021Q1

REPORT INFORMATION
  Report Type: Report from Study
  Country: US (occurrence: US)
  Receive Date: 20191116
  Receipt Date: 20210222
  Transmission Date: 20210419
  Serious: Yes (Other)
  Sender: FDA-Public Use
  Company Number: NVSC2019US037081

PATIENT
  Sex: Female

DRUGS (2)
  1. AFINITOR [Suspect]
     Active Substance: EVEROLIMUS
     Indication: TUBEROUS SCLEROSIS COMPLEX
     Dosage: 9 MG, QD
     Route: 048
     Dates: start: 20191004
  2. AFINITOR [Suspect]
     Active Substance: EVEROLIMUS
     Indication: PARTIAL SEIZURES

REACTIONS (14)
  - Seizure cluster [Unknown]
  - Condition aggravated [Unknown]
  - Headache [Unknown]
  - Lip pain [Unknown]
  - Fatigue [Unknown]
  - Complex regional pain syndrome [Unknown]
  - Coma [Unknown]
  - Back injury [Unknown]
  - Aphthous ulcer [Unknown]
  - Oral disorder [Unknown]
  - Product dose omission issue [Unknown]
  - Acne [Unknown]
  - Muscle twitching [Unknown]
  - Insomnia [Unknown]
